FAERS Safety Report 9834542 (Version 2)
Quarter: 2014Q1

REPORT INFORMATION
  Report Type: Spontaneous
  Country: AR (occurrence: AR)
  Receive Date: 20140122
  Receipt Date: 20140122
  Transmission Date: 20141002
  Serious: Yes (Hospitalization)
  Sender: FDA-Public Use
  Company Number: AR-PFIZER INC-2013323712

PATIENT
  Age: 2 Year
  Sex: Female

DRUGS (4)
  1. RAPAMUNE [Suspect]
     Indication: PROPHYLAXIS AGAINST TRANSPLANT REJECTION
     Dosage: 0.5 MG, 1X/DAY
     Route: 048
     Dates: start: 20130128
  2. DELTISON [Concomitant]
  3. CALCIUM [Concomitant]
  4. VITAMINS [Concomitant]

REACTIONS (6)
  - Viral infection [Recovered/Resolved]
  - Gastroenteritis [Recovered/Resolved]
  - Viral infection [Recovered/Resolved]
  - Pyrexia [Recovered/Resolved]
  - Vomiting [Recovered/Resolved]
  - Off label use [Not Recovered/Not Resolved]
